FAERS Safety Report 15504144 (Version 1)
Quarter: 2018Q4

REPORT INFORMATION
  Report Type: Report from Study
  Country: US (occurrence: US)
  Receive Date: 20181016
  Receipt Date: 20181016
  Transmission Date: 20190205
  Serious: No
  Sender: FDA-Public Use
  Company Number: US-AMGEN INC.-USASP2018131498

PATIENT
  Age: 30 Year
  Sex: Male

DRUGS (6)
  1. ZETONNA [Concomitant]
     Active Substance: CICLESONIDE
     Indication: SINUS DISORDER
  2. DECADRON [Concomitant]
     Active Substance: DEXAMETHASONE
     Indication: HEADACHE
     Dosage: UNK
  3. AIMOVIG [Suspect]
     Active Substance: ERENUMAB-AOOE
     Indication: SPONDYLOLYSIS
     Dosage: 70 MG, QMO
     Route: 065
  4. ZETONNA [Concomitant]
     Active Substance: CICLESONIDE
     Indication: HYPERSENSITIVITY
     Dosage: UNK
  5. AIMOVIG [Suspect]
     Active Substance: ERENUMAB-AOOE
     Indication: MIGRAINE PROPHYLAXIS
     Dosage: 70 MG, QMO
     Route: 065
     Dates: start: 201807
  6. BYSTOLIC [Concomitant]
     Active Substance: NEBIVOLOL HYDROCHLORIDE
     Indication: MIGRAINE
     Dosage: UNK

REACTIONS (3)
  - White blood cell count increased [Unknown]
  - Influenza like illness [Not Recovered/Not Resolved]
  - Sinus disorder [Not Recovered/Not Resolved]

NARRATIVE: CASE EVENT DATE: 2018
